FAERS Safety Report 18180139 (Version 1)
Quarter: 2020Q3

REPORT INFORMATION
  Report Type: Spontaneous
  Country: CA (occurrence: CA)
  Receive Date: 20200821
  Receipt Date: 20200821
  Transmission Date: 20201103
  Serious: Yes (Other)
  Sender: FDA-Public Use
  Company Number: CA-ASTRAZENECA-2020SF04450

PATIENT
  Age: 84 Year
  Sex: Male

DRUGS (2)
  1. DONEPEZIL. [Suspect]
     Active Substance: DONEPEZIL
     Indication: GOUT
     Route: 065
  2. QUETIAPINE. [Suspect]
     Active Substance: QUETIAPINE
     Route: 048

REACTIONS (5)
  - Somnolence [Unknown]
  - Muscle rigidity [Unknown]
  - Sedation complication [Unknown]
  - Fall [Unknown]
  - Unresponsive to stimuli [Unknown]
